FAERS Safety Report 8862442 (Version 2)
Quarter: 2012Q4

REPORT INFORMATION
  Report Type: 
  Country: US (occurrence: US)
  Receive Date: 20121026
  Receipt Date: 20121106
  Transmission Date: 20130627
  Serious: Yes (Other)
  Sender: FDA-Public Use
  Company Number: US-CELGENEUS-163-21880-12053596

PATIENT
  Sex: Female

DRUGS (7)
  1. REVLIMID [Suspect]
     Indication: MULTIPLE MYELOMA
     Route: 048
     Dates: start: 201108, end: 201112
  2. VELCADE [Concomitant]
     Indication: MULTIPLE MYELOMA
     Route: 065
  3. STEROID [Concomitant]
     Indication: DRUG USE FOR UNKNOWN INDICATION
     Route: 065
  4. TYLENOL PM [Concomitant]
     Indication: DRUG USE FOR UNKNOWN INDICATION
     Dosage: 2
     Route: 065
  5. VITAMINS [Concomitant]
     Indication: DRUG USE FOR UNKNOWN INDICATION
     Route: 065
  6. DEXAMETHASONE [Concomitant]
     Indication: NEUROPATHY
     Route: 065
  7. GABAPENTIN [Concomitant]
     Indication: NEUROPATHY
     Route: 065

REACTIONS (9)
  - Parkinsonism [Recovered/Resolved]
  - Neuralgia [Recovered/Resolved]
  - Increased tendency to bruise [Recovered/Resolved]
  - Pain [Recovered/Resolved]
  - Hypoacusis [Unknown]
  - Memory impairment [Not Recovered/Not Resolved]
  - Neuropathy peripheral [Not Recovered/Not Resolved]
  - Pneumonia [Not Recovered/Not Resolved]
  - Tremor [Not Recovered/Not Resolved]
